FAERS Safety Report 16507773 (Version 2)
Quarter: 2020Q2

REPORT INFORMATION
  Report Type: Report from Study
  Country: AU (occurrence: AU)
  Receive Date: 20190701
  Receipt Date: 20200514
  Transmission Date: 20200713
  Serious: Yes (Other)
  Sender: FDA-Public Use
  Company Number: AU-JNJFOC-20190439288

PATIENT
  Age: 32 Year
  Sex: Male

DRUGS (2)
  1. STELARA [Suspect]
     Active Substance: USTEKINUMAB
  2. STELARA [Suspect]
     Active Substance: USTEKINUMAB
     Indication: CROHN^S DISEASE
     Route: 058

REACTIONS (5)
  - Lower respiratory tract infection [Recovering/Resolving]
  - Gastroenteritis [Recovering/Resolving]
  - Upper respiratory tract infection [Recovering/Resolving]
  - Therapeutic response decreased [Recovering/Resolving]
  - Conduction disorder [Unknown]

NARRATIVE: CASE EVENT DATE: 2019
